FAERS Safety Report 24844905 (Version 1)
Quarter: 2025Q1

REPORT INFORMATION
  Report Type: Spontaneous
  Country: FR (occurrence: FR)
  Receive Date: 20250115
  Receipt Date: 20250115
  Transmission Date: 20250409
  Serious: Yes (Other)
  Sender: Kenvue
  Company Number: FR-JNTL CONSUMER HEALTH MIDDLE EAST FZ-LLC-20250103072

PATIENT

DRUGS (1)
  1. MINOXIDIL [Suspect]
     Active Substance: MINOXIDIL
     Indication: Alopecia
     Route: 065

REACTIONS (1)
  - Central nervous system lymphoma [Unknown]
